FAERS Safety Report 22656052 (Version 3)
Quarter: 2023Q4

REPORT INFORMATION
  Report Type: Report from Study
  Country: GB (occurrence: None)
  Receive Date: 20230629
  Receipt Date: 20231130
  Transmission Date: 20240110
  Serious: Yes (Hospitalization)
  Sender: FDA-Public Use
  Company Number: GB-ROCHE-2806090

PATIENT
  Age: 78 Year
  Sex: Female
  Weight: 85.6 kg

DRUGS (78)
  1. GLOFITAMAB [Suspect]
     Active Substance: GLOFITAMAB
     Indication: B-cell lymphoma
     Dosage: DATE OF MOST RECENT DOSE (10 MG) OF RO7082859 PRIOR TO SAE: 30/MAR/2021 AT 11:00 AM TILL 4:00 PM.
     Route: 042
     Dates: start: 20210323
  2. OBINUTUZUMAB [Suspect]
     Active Substance: OBINUTUZUMAB
     Indication: B-cell lymphoma
     Dosage: DATE OF MOST RECENT DOSE (1000 MG) OF OBINUTUZUMAB PRIOR TO AE: 17/MAR/2021 AT 10:21 AM TILL 3:14 AM
     Route: 042
     Dates: start: 20210317
  3. FLUDEOXYGLUCOSE F-18 [Suspect]
     Active Substance: FLUDEOXYGLUCOSE F-18
     Indication: B-cell lymphoma
     Dosage: DATE OF MOST RECENT DOSE OF FLUORODEOXYGLUCOSE 18F PRIOR TO SAE: 22/FEB/2021
     Route: 042
     Dates: start: 20210222
  4. METOCLOPRAMIDE [Concomitant]
     Active Substance: METOCLOPRAMIDE
     Indication: Nausea
     Route: 048
     Dates: start: 20210327, end: 202104
  5. METOCLOPRAMIDE [Concomitant]
     Active Substance: METOCLOPRAMIDE
     Indication: Vomiting
  6. MORPHINE SULFATE [Concomitant]
     Active Substance: MORPHINE SULFATE
     Indication: Pain in extremity
     Route: 048
     Dates: start: 20210331, end: 20210401
  7. MORPHINE SULFATE [Concomitant]
     Active Substance: MORPHINE SULFATE
     Indication: Pain in extremity
     Route: 048
     Dates: start: 202103, end: 20210401
  8. MORPHINE SULFATE [Concomitant]
     Active Substance: MORPHINE SULFATE
     Indication: Back pain
     Route: 048
     Dates: start: 20210401, end: 20210401
  9. AMOXICILLIN\CLAVULANATE POTASSIUM [Concomitant]
     Active Substance: AMOXICILLIN\CLAVULANATE POTASSIUM
     Indication: Cough
     Route: 048
     Dates: start: 20210331, end: 20210401
  10. AMOXICILLIN\CLAVULANATE POTASSIUM [Concomitant]
     Active Substance: AMOXICILLIN\CLAVULANATE POTASSIUM
     Indication: Wound infection
     Route: 048
     Dates: start: 20210303
  11. UNSPECIFIED INGREDIENT [Concomitant]
     Active Substance: UNSPECIFIED INGREDIENT
     Indication: Hypotension
     Route: 042
     Dates: start: 20210401, end: 20210401
  12. UNSPECIFIED INGREDIENT [Concomitant]
     Active Substance: UNSPECIFIED INGREDIENT
     Indication: Cytokine release syndrome
     Route: 042
     Dates: start: 20210520, end: 20210521
  13. APIXABAN [Concomitant]
     Active Substance: APIXABAN
     Indication: Deep vein thrombosis
     Route: 048
     Dates: start: 201905
  14. LEVOTHYROXINE [Concomitant]
     Active Substance: LEVOTHYROXINE
     Indication: Hypothyroidism
     Route: 048
     Dates: start: 1990
  15. RAMIPRIL [Concomitant]
     Active Substance: RAMIPRIL
     Indication: Hypertension
     Route: 048
  16. BENDROFLUMETHIAZIDE [Concomitant]
     Active Substance: BENDROFLUMETHIAZIDE
     Indication: Hypertension
     Route: 048
  17. COCODAMOL [Concomitant]
     Active Substance: ACETAMINOPHEN\CODEINE PHOSPHATE
     Route: 048
  18. ACYCLOVIR [Concomitant]
     Active Substance: ACYCLOVIR
     Route: 048
     Dates: start: 202010
  19. COTRIMOXAZOLE [Concomitant]
     Active Substance: SULFAMETHOXAZOLE\TRIMETHOPRIM
     Indication: Pneumocystis jirovecii pneumonia
     Route: 048
     Dates: start: 202010
  20. FERROUS SULFATE [Concomitant]
     Active Substance: FERROUS SULFATE
     Indication: Blood iron decreased
     Route: 048
     Dates: start: 202008
  21. DIHYDROCODEINE [Concomitant]
     Active Substance: DIHYDROCODEINE
     Indication: Pyrexia
     Route: 048
     Dates: start: 20210415
  22. DIHYDROCODEINE [Concomitant]
     Active Substance: DIHYDROCODEINE
     Indication: Tumour pain
  23. METHYLPREDNISOLONE [Concomitant]
     Active Substance: METHYLPREDNISOLONE
     Indication: Pyrexia
     Route: 042
     Dates: start: 20210415, end: 20210415
  24. METHYLPREDNISOLONE [Concomitant]
     Active Substance: METHYLPREDNISOLONE
     Indication: Cytokine release syndrome
     Route: 042
     Dates: start: 20210520, end: 20210520
  25. METHYLPREDNISOLONE [Concomitant]
     Active Substance: METHYLPREDNISOLONE
     Route: 042
     Dates: start: 20210317, end: 20210317
  26. METHYLPREDNISOLONE [Concomitant]
     Active Substance: METHYLPREDNISOLONE
     Route: 042
     Dates: start: 20210401, end: 20210401
  27. ACETAMINOPHEN [Concomitant]
     Active Substance: ACETAMINOPHEN
     Indication: Tumour pain
     Route: 048
     Dates: start: 20210415
  28. ACETAMINOPHEN [Concomitant]
     Active Substance: ACETAMINOPHEN
     Indication: Pyrexia
     Route: 048
     Dates: start: 20210520, end: 20210521
  29. ACETAMINOPHEN [Concomitant]
     Active Substance: ACETAMINOPHEN
     Indication: Cytokine release syndrome
     Route: 048
     Dates: start: 20210317, end: 20210317
  30. ACETAMINOPHEN [Concomitant]
     Active Substance: ACETAMINOPHEN
     Route: 048
     Dates: start: 20210323, end: 20210323
  31. ACETAMINOPHEN [Concomitant]
     Active Substance: ACETAMINOPHEN
     Route: 048
     Dates: start: 20210325, end: 20210325
  32. ACETAMINOPHEN [Concomitant]
     Active Substance: ACETAMINOPHEN
     Route: 048
     Dates: start: 20210330, end: 20210330
  33. ACETAMINOPHEN [Concomitant]
     Active Substance: ACETAMINOPHEN
     Route: 048
     Dates: start: 20210519, end: 20210519
  34. ACETAMINOPHEN [Concomitant]
     Active Substance: ACETAMINOPHEN
     Route: 048
     Dates: start: 20210414, end: 20210414
  35. ACETAMINOPHEN [Concomitant]
     Active Substance: ACETAMINOPHEN
     Route: 048
     Dates: start: 20210609, end: 20210609
  36. ACETAMINOPHEN [Concomitant]
     Active Substance: ACETAMINOPHEN
     Route: 048
     Dates: start: 20210701, end: 20210701
  37. CHLORPHENIRAMINE MALEATE [Concomitant]
     Active Substance: CHLORPHENIRAMINE MALEATE
     Indication: Cytokine release syndrome
     Route: 042
     Dates: start: 20210520, end: 20210521
  38. CHLORPHENIRAMINE MALEATE [Concomitant]
     Active Substance: CHLORPHENIRAMINE MALEATE
     Indication: Pyrexia
     Route: 042
     Dates: start: 20210317, end: 20210317
  39. CHLORPHENIRAMINE MALEATE [Concomitant]
     Active Substance: CHLORPHENIRAMINE MALEATE
     Route: 042
     Dates: start: 20210323, end: 20210323
  40. CHLORPHENIRAMINE MALEATE [Concomitant]
     Active Substance: CHLORPHENIRAMINE MALEATE
     Route: 042
     Dates: start: 20210325, end: 20210325
  41. CHLORPHENIRAMINE MALEATE [Concomitant]
     Active Substance: CHLORPHENIRAMINE MALEATE
     Route: 042
     Dates: start: 20210330, end: 20210330
  42. CHLORPHENIRAMINE MALEATE [Concomitant]
     Active Substance: CHLORPHENIRAMINE MALEATE
     Route: 042
     Dates: start: 20210519, end: 20210519
  43. CHLORPHENIRAMINE MALEATE [Concomitant]
     Active Substance: CHLORPHENIRAMINE MALEATE
     Route: 042
     Dates: start: 20210414, end: 20210414
  44. CHLORPHENIRAMINE MALEATE [Concomitant]
     Active Substance: CHLORPHENIRAMINE MALEATE
     Route: 042
     Dates: start: 20210609, end: 20210609
  45. CHLORPHENIRAMINE MALEATE [Concomitant]
     Active Substance: CHLORPHENIRAMINE MALEATE
     Route: 042
     Dates: start: 20210701, end: 20210701
  46. CHLORPHENIRAMINE MALEATE [Concomitant]
     Active Substance: CHLORPHENIRAMINE MALEATE
     Route: 048
     Dates: start: 20210520
  47. GRANULOCYTE COLONY-STIMULATING FACTOR NOS [Concomitant]
     Active Substance: GRANULOCYTE COLONY-STIMULATING FACTOR NOS
     Indication: Neutropenia
     Route: 058
     Dates: start: 20210504, end: 20210508
  48. DEXAMETHASONE [Concomitant]
     Active Substance: DEXAMETHASONE
     Route: 042
     Dates: start: 20210323, end: 20210323
  49. DEXAMETHASONE [Concomitant]
     Active Substance: DEXAMETHASONE
     Route: 042
     Dates: start: 20210325, end: 20210325
  50. DEXAMETHASONE [Concomitant]
     Active Substance: DEXAMETHASONE
     Route: 042
     Dates: start: 20210330, end: 20210330
  51. DEXAMETHASONE [Concomitant]
     Active Substance: DEXAMETHASONE
     Route: 042
     Dates: start: 20210519, end: 20210519
  52. DEXAMETHASONE [Concomitant]
     Active Substance: DEXAMETHASONE
     Route: 042
     Dates: start: 20210414, end: 20210414
  53. DEXAMETHASONE [Concomitant]
     Active Substance: DEXAMETHASONE
     Route: 042
     Dates: start: 20210609, end: 20210609
  54. DEXAMETHASONE [Concomitant]
     Active Substance: DEXAMETHASONE
     Route: 042
     Dates: start: 20210701, end: 20210701
  55. ALBUTEROL [Concomitant]
     Active Substance: ALBUTEROL
     Indication: Bronchospasm
     Route: 048
     Dates: start: 20210518, end: 20210518
  56. ALBUTEROL [Concomitant]
     Active Substance: ALBUTEROL
     Route: 048
     Dates: start: 20210616, end: 20210616
  57. ALBUTEROL [Concomitant]
     Active Substance: ALBUTEROL
     Route: 048
     Dates: start: 20210713, end: 20210713
  58. ALBUTEROL [Concomitant]
     Active Substance: ALBUTEROL
     Route: 048
     Dates: start: 20210810, end: 20210810
  59. PENTAMIDINE [Concomitant]
     Active Substance: PENTAMIDINE
     Indication: Antifungal prophylaxis
     Route: 048
     Dates: start: 20210518, end: 20210518
  60. PENTAMIDINE [Concomitant]
     Active Substance: PENTAMIDINE
     Route: 048
     Dates: start: 20210616, end: 20210616
  61. PENTAMIDINE [Concomitant]
     Active Substance: PENTAMIDINE
     Route: 048
     Dates: start: 20210713, end: 20210713
  62. PENTAMIDINE [Concomitant]
     Active Substance: PENTAMIDINE
     Route: 048
     Dates: start: 20210810, end: 20210810
  63. CO-DYDRAMOL [Concomitant]
     Active Substance: ACETAMINOPHEN\DIHYDROCODEINE
     Indication: Tumour pain
     Route: 048
     Dates: start: 20210415
  64. CO-DYDRAMOL [Concomitant]
     Active Substance: ACETAMINOPHEN\DIHYDROCODEINE
     Indication: Pyrexia
  65. SODIUM CHLORIDE [Concomitant]
     Active Substance: SODIUM CHLORIDE
     Indication: Cytokine release syndrome
     Route: 042
     Dates: start: 20210415, end: 20210415
  66. SODIUM CHLORIDE [Concomitant]
     Active Substance: SODIUM CHLORIDE
     Route: 042
     Dates: start: 20210520, end: 20210521
  67. SODIUM CHLORIDE [Concomitant]
     Active Substance: SODIUM CHLORIDE
     Route: 042
     Dates: start: 20210415, end: 20210415
  68. FUROSEMIDE [Concomitant]
     Active Substance: FUROSEMIDE
     Indication: Hypervolaemia
     Route: 042
     Dates: start: 20210422, end: 20210422
  69. FUROSEMIDE [Concomitant]
     Active Substance: FUROSEMIDE
     Route: 042
     Dates: start: 20210519, end: 20210519
  70. FUROSEMIDE [Concomitant]
     Active Substance: FUROSEMIDE
     Route: 048
     Dates: start: 20210519, end: 20210519
  71. GCSF TYPE GROWTH FACTORS (UNK INGREDIENTS) [Concomitant]
     Indication: Neutropenia
     Route: 058
     Dates: start: 20210504, end: 20210508
  72. PIPERACILLIN SODIUM\TAZOBACTAM SODIUM [Concomitant]
     Active Substance: PIPERACILLIN SODIUM\TAZOBACTAM SODIUM
     Indication: Sepsis
     Route: 042
     Dates: start: 20210520, end: 20210522
  73. PIPERACILLIN SODIUM\TAZOBACTAM SODIUM [Concomitant]
     Active Substance: PIPERACILLIN SODIUM\TAZOBACTAM SODIUM
     Indication: Vascular device infection
     Route: 042
     Dates: start: 20210401, end: 20210401
  74. PIPERACILLIN SODIUM\TAZOBACTAM SODIUM [Concomitant]
     Active Substance: PIPERACILLIN SODIUM\TAZOBACTAM SODIUM
     Indication: Diarrhoea
     Route: 042
     Dates: start: 20210722
  75. PIPERACILLIN SODIUM\TAZOBACTAM SODIUM [Concomitant]
     Active Substance: PIPERACILLIN SODIUM\TAZOBACTAM SODIUM
     Indication: Vomiting
  76. FILGRASTIM [Concomitant]
     Active Substance: FILGRASTIM
     Indication: Neutropenia
     Route: 058
     Dates: start: 20210504, end: 20210508
  77. LORAZEPAM [Concomitant]
     Active Substance: LORAZEPAM
     Indication: Back pain
     Route: 060
     Dates: start: 20210401, end: 20210401
  78. SALINE [Concomitant]
     Active Substance: SODIUM CHLORIDE
     Indication: Vomiting
     Route: 042
     Dates: start: 20210722

REACTIONS (1)
  - Lung consolidation [Not Recovered/Not Resolved]

NARRATIVE: CASE EVENT DATE: 20210401
